FAERS Safety Report 7348978-0 (Version None)
Quarter: 2011Q1

REPORT INFORMATION
  Report Type: 
  Country: None (occurrence: None)
  Receive Date: 20110314
  Receipt Date: 20110214
  Transmission Date: 20110831
  Serious: No
  Sender: FDA-Public Use
  Company Number: US-B.I. PHARMACEUTICALS,INC./RIDGEFIELD-2010-BP-14534BP

PATIENT
  Sex: Female

DRUGS (9)
  1. OMEPRAZOLE [Concomitant]
     Dosage: 40 MG
  2. VERAPAMIL [Concomitant]
     Dosage: 120 MG
  3. PRADAXA [Suspect]
     Indication: ATRIAL FIBRILLATION
     Dosage: 300 MG
     Route: 048
     Dates: start: 20101124, end: 20101208
  4. ASPIRIN [Concomitant]
     Dosage: 81 MG
  5. PRADAXA [Suspect]
     Dosage: 150 MG
     Route: 048
     Dates: start: 20101211, end: 20101211
  6. ZETIA [Concomitant]
     Dosage: 10 MG
  7. LIPITOR [Concomitant]
     Dosage: 10 MG
  8. MULTAQ [Concomitant]
     Dosage: 800 MG
  9. FOLIC ACID [Concomitant]
     Dosage: 1 MG

REACTIONS (3)
  - WEIGHT DECREASED [None]
  - DIARRHOEA [None]
  - NAUSEA [None]
